FAERS Safety Report 10456961 (Version 2)
Quarter: 2015Q1

REPORT INFORMATION
  Report Type: Spontaneous
  Country: US (occurrence: US)
  Receive Date: 20140916
  Receipt Date: 20150120
  Transmission Date: 20150720
  Serious: No
  Sender: FDA-Public Use
  Company Number: US-ASTRAZENECA-2014SE66855

PATIENT
  Age: 66 Year
  Sex: Female

DRUGS (1)
  1. SYMBICORT [Suspect]
     Active Substance: BUDESONIDE\FORMOTEROL FUMARATE DIHYDRATE
     Indication: ASTHMA PROPHYLAXIS
     Dosage: 160 4.5, 2 PUFFS BID
     Route: 055
     Dates: start: 2012

REACTIONS (3)
  - Device misuse [Unknown]
  - Dyspnoea [Unknown]
  - Drug ineffective [None]

NARRATIVE: CASE EVENT DATE: 2014
